FAERS Safety Report 15716619 (Version 2)
Quarter: 2019Q1

REPORT INFORMATION
  Report Type: Spontaneous
  Country: US (occurrence: US)
  Receive Date: 20181213
  Receipt Date: 20190318
  Transmission Date: 20190417
  Serious: Yes (Hospitalization, Other)
  Sender: FDA-Public Use
  Company Number: US-CIPLA LTD.-2018US23480

PATIENT

DRUGS (2)
  1. WARFARIN [Suspect]
     Active Substance: WARFARIN
     Indication: ANTICOAGULANT THERAPY
     Dosage: 5 MILLIGRAM, DAILY
     Route: 065
  2. IVERMECTIN. [Interacting]
     Active Substance: IVERMECTIN
     Indication: ACARODERMATITIS
     Dosage: 3 MILLIGRAM, UNK
     Route: 065

REACTIONS (4)
  - Tongue haematoma [Recovering/Resolving]
  - Intra-abdominal haematoma [Unknown]
  - Drug interaction [Unknown]
  - Anticoagulation drug level above therapeutic [Recovered/Resolved]
